FAERS Safety Report 4653751-8 (Version None)
Quarter: 2005Q2

REPORT INFORMATION
  Report Type: 
  Country: None (occurrence: None)
  Receive Date: 20050504
  Receipt Date: 20050421
  Transmission Date: 20051028
  Serious: Yes (Death)
  Sender: FDA-Public Use
  Company Number: 2005063085

PATIENT
  Sex: Male

DRUGS (3)
  1. DILANTIN [Suspect]
     Indication: CONVULSION
     Dosage: ORAL
     Route: 048
     Dates: start: 20021201
  2. ALLOPURINOL [Concomitant]
  3. IBUPROFEN [Concomitant]

REACTIONS (6)
  - DELIRIUM [None]
  - DEMENTIA ALZHEIMER'S TYPE [None]
  - FALL [None]
  - SLEEP APNOEA SYNDROME [None]
  - SOMNOLENCE [None]
  - WEIGHT DECREASED [None]
